FAERS Safety Report 13591766 (Version 1)
Quarter: 2017Q2

REPORT INFORMATION
  Report Type: Report from Study
  Country: FR (occurrence: FR)
  Receive Date: 20170529
  Receipt Date: 20170529
  Transmission Date: 20170830
  Serious: Yes (Hospitalization, Other)
  Sender: FDA-Public Use
  Company Number: FR-ARIAD PHARMACEUTICALS, INC-2017FR008275

PATIENT
  Sex: Male

DRUGS (1)
  1. AP26113 [Suspect]
     Active Substance: BRIGATINIB
     Indication: PRODUCT USED FOR UNKNOWN INDICATION
     Dosage: UNK
     Route: 048
     Dates: start: 201612

REACTIONS (1)
  - Bipolar disorder [Unknown]

NARRATIVE: CASE EVENT DATE: 20170507
